FAERS Safety Report 7024890-1 (Version None)
Quarter: 2010Q4

REPORT INFORMATION
  Report Type: 
  Country: None (occurrence: None)
  Receive Date: 20101001
  Receipt Date: 20100927
  Transmission Date: 20110411
  Serious: Yes (Other)
  Sender: FDA-Public Use
  Company Number: FR-MERCK-1009FRA00111

PATIENT
  Age: 39 Year
  Sex: Female

DRUGS (7)
  1. ISENTRESS [Suspect]
     Route: 048
  2. LAMIVUDINE AND ZIDOVUDINE [Suspect]
     Route: 048
  3. DARUNAVIR [Suspect]
     Route: 048
  4. RITONAVIR [Suspect]
     Route: 048
  5. EMTRICITABINE [Suspect]
     Route: 048
  6. LOPINAVIR AND RITONAVIR [Suspect]
     Route: 048
  7. TENOFOVIR DISOPROXIL FUMARATE [Suspect]
     Route: 048

REACTIONS (4)
  - DRUG EXPOSURE DURING PREGNANCY [None]
  - HYPERTENSION [None]
  - STILLBIRTH [None]
  - UROSEPSIS [None]
